FAERS Safety Report 11220432 (Version 1)
Quarter: 2015Q2

REPORT INFORMATION
  Report Type: Spontaneous
  Country: US (occurrence: None)
  Receive Date: 20150625
  Receipt Date: 20150625
  Transmission Date: 20150821
  Serious: Yes (Death, Hospitalization)
  Sender: FDA-Public Use
  Company Number: None

PATIENT
  Age: 21 Year
  Sex: Male
  Weight: 95.26 kg

DRUGS (1)
  1. SEROQUEL [Suspect]
     Active Substance: QUETIAPINE FUMARATE
     Indication: SCHIZOAFFECTIVE DISORDER
     Dosage: 1000MG DAILY, TWICE DAILY, TAKEN BY MOUTH
     Route: 048
     Dates: start: 20131105, end: 20140728

REACTIONS (11)
  - Speech disorder [None]
  - Loss of libido [None]
  - Disturbance in attention [None]
  - Completed suicide [None]
  - Weight increased [None]
  - Akinesia [None]
  - Suicidal ideation [None]
  - Fatigue [None]
  - Emotional disorder [None]
  - Gun shot wound [None]
  - Psychotic disorder [None]

NARRATIVE: CASE EVENT DATE: 20140728
